FAERS Safety Report 15786229 (Version 2)
Quarter: 2019Q1

REPORT INFORMATION
  Report Type: Spontaneous
  Country: BR (occurrence: BR)
  Receive Date: 20190103
  Receipt Date: 20190205
  Transmission Date: 20190417
  Serious: Yes (Other)
  Sender: FDA-Public Use
  Company Number: BR-SA-2018SA394528

PATIENT
  Sex: Female
  Weight: 88 kg

DRUGS (4)
  1. LANTUS [Suspect]
     Active Substance: INSULIN GLARGINE
     Dosage: 15 IU, BID
     Route: 065
     Dates: start: 2017
  2. LANTUS [Suspect]
     Active Substance: INSULIN GLARGINE
     Indication: DIABETES MELLITUS
     Dosage: 15IU AT MORNING AND 14 IU AT NIGHT (END OF AFTERNOON)
     Route: 065
     Dates: start: 2008
  3. ALPRAZ [Concomitant]
     Active Substance: ALPRAZOLAM
     Dosage: 1 MG, HS
     Route: 065
     Dates: start: 2008
  4. ENALAPRIL MALEATE. [Concomitant]
     Active Substance: ENALAPRIL MALEATE
     Indication: HYPERTENSION
     Dosage: 5 MG, BID
     Route: 048

REACTIONS (4)
  - Lower limb fracture [Unknown]
  - Femur fracture [Unknown]
  - Inappropriate schedule of product administration [Unknown]
  - Fall [Unknown]
